FAERS Safety Report 21815643 (Version 1)
Quarter: 2023Q1

REPORT INFORMATION
  Report Type: Spontaneous
  Country: US (occurrence: US)
  Receive Date: 20230104
  Receipt Date: 20230104
  Transmission Date: 20230417
  Serious: No
  Sender: FDA-Public Use
  Company Number: US-STRIDES ARCOLAB LIMITED-2022SP006030

PATIENT
  Age: 98 Year
  Sex: Female

DRUGS (3)
  1. DOXYCYCLINE [Suspect]
     Active Substance: DOXYCYCLINE
     Indication: Pemphigoid
     Dosage: 100 MILLIGRAM, BID
     Route: 048
  2. CLOBETASOL [Concomitant]
     Active Substance: CLOBETASOL
     Indication: Pemphigoid
     Dosage: UNK, BID (0.5% CREAM)
     Route: 061
  3. GABAPENTIN [Concomitant]
     Active Substance: GABAPENTIN
     Indication: Product used for unknown indication
     Dosage: UNK
     Route: 065

REACTIONS (3)
  - Nausea [Unknown]
  - Decreased appetite [Unknown]
  - Off label use [Unknown]
